FAERS Safety Report 25223101 (Version 1)
Quarter: 2025Q2

REPORT INFORMATION
  Report Type: Spontaneous
  Country: FR (occurrence: FR)
  Receive Date: 20250422
  Receipt Date: 20250422
  Transmission Date: 20250717
  Serious: Yes (Disabling)
  Sender: FRESENIUS KABI
  Company Number: None

PATIENT
  Age: 1 Month
  Sex: Male
  Weight: 3.25 kg

DRUGS (3)
  1. SODIUM CHLORIDE [Suspect]
     Active Substance: SODIUM CHLORIDE
     Indication: Fluid replacement
     Route: 013
     Dates: start: 20240330, end: 20240330
  2. CALCIUM CHLORIDE [Suspect]
     Active Substance: CALCIUM CHLORIDE
     Indication: Fluid replacement
     Route: 013
     Dates: start: 20240330, end: 20240330
  3. POTASSIUM CHLORIDE [Suspect]
     Active Substance: POTASSIUM CHLORIDE
     Indication: Fluid replacement
     Route: 013
     Dates: start: 20240330, end: 20240330

REACTIONS (2)
  - Artery dissection [Recovered/Resolved with Sequelae]
  - Incorrect route of product administration [Recovered/Resolved with Sequelae]

NARRATIVE: CASE EVENT DATE: 20240330
